FAERS Safety Report 7029508-X (Version None)
Quarter: 2010Q4

REPORT INFORMATION
  Report Type: 
  Country: None (occurrence: None)
  Receive Date: 20101005
  Receipt Date: 20100927
  Transmission Date: 20110411
  Serious: Yes (Hospitalization)
  Sender: FDA-Public Use
  Company Number: US-ELI_LILLY_AND_COMPANY-US201009007849

PATIENT
  Sex: Female

DRUGS (2)
  1. ADCIRCA [Suspect]
     Dosage: UNK, UNKNOWN
  2. TRACLEER [Concomitant]

REACTIONS (1)
  - HOSPITALISATION [None]
